FAERS Safety Report 9587333 (Version 2)
Quarter: 2014Q1

REPORT INFORMATION
  Report Type: Spontaneous
  Country: CA (occurrence: CA)
  Receive Date: 20131003
  Receipt Date: 20140131
  Transmission Date: 20141002
  Serious: Yes (Other)
  Sender: FDA-Public Use
  Company Number: CA-JNJFOC-20130915735

PATIENT
  Age: 33 Year
  Sex: Female
  Weight: 67 kg

DRUGS (4)
  1. REMICADE [Suspect]
     Indication: COLITIS ULCERATIVE
     Route: 042
     Dates: start: 201107, end: 201309
  2. IMURAN [Suspect]
     Indication: COLITIS ULCERATIVE
     Route: 065
     Dates: start: 1998
  3. SULFASALAZINE [Concomitant]
     Indication: COLITIS ULCERATIVE
     Dosage: DAILY
     Route: 065
     Dates: start: 1992
  4. NEXIUM [Concomitant]
     Indication: GASTROOESOPHAGEAL REFLUX DISEASE
     Route: 065
     Dates: start: 2000

REACTIONS (1)
  - Papillary thyroid cancer [Recovered/Resolved]
